FAERS Safety Report 18056326 (Version 2)
Quarter: 2020Q3

REPORT INFORMATION
  Report Type: Spontaneous
  Country: DK (occurrence: DK)
  Receive Date: 20200722
  Receipt Date: 20200723
  Transmission Date: 20201103
  Serious: Yes (Death, Hospitalization, Other)
  Sender: FDA-Public Use
  Company Number: DK-ABBVIE-20K-044-3492842-00

PATIENT
  Age: 16 Year
  Sex: Female

DRUGS (1)
  1. VENETOCLAX. [Suspect]
     Active Substance: VENETOCLAX
     Indication: PRODUCT USED FOR UNKNOWN INDICATION
     Route: 048

REACTIONS (4)
  - Unevaluable event [Fatal]
  - Hospitalisation [Unknown]
  - Off label use [Unknown]
  - Coma [Unknown]

NARRATIVE: CASE EVENT DATE: 202007
